FAERS Safety Report 13670236 (Version 1)
Quarter: 2017Q2

REPORT INFORMATION
  Report Type: Spontaneous
  Country: US (occurrence: US)
  Receive Date: 20170620
  Receipt Date: 20170620
  Transmission Date: 20170830
  Serious: No
  Sender: FDA-Public Use
  Company Number: US-BAYER-2017-108485

PATIENT
  Age: 70 Year
  Sex: Female
  Weight: 76 kg

DRUGS (3)
  1. ALEVE [Suspect]
     Active Substance: NAPROXEN SODIUM
     Indication: PAIN
     Route: 048
     Dates: start: 2016, end: 20170605
  2. BAYER ASPIRIN [Suspect]
     Active Substance: ASPIRIN
     Indication: PAIN
     Dosage: 2 DF, QD
     Route: 048
     Dates: start: 2016, end: 2016
  3. EYE DROPS [Concomitant]
     Active Substance: UNSPECIFIED INGREDIENT
     Dosage: UNK

REACTIONS (2)
  - Suspected counterfeit product [None]
  - Product use issue [Unknown]

NARRATIVE: CASE EVENT DATE: 2016
